FAERS Safety Report 7805504-7 (Version None)
Quarter: 2011Q4

REPORT INFORMATION
  Report Type: 
  Country: None (occurrence: None)
  Receive Date: 20111010
  Receipt Date: 20111004
  Transmission Date: 20120403
  Serious: Yes (Other)
  Sender: FDA-Public Use
  Company Number: PHEH2011US05968

PATIENT
  Age: 66 Year
  Sex: Male
  Weight: 76.644 kg

DRUGS (1)
  1. RECLAST [Suspect]
     Indication: OSTEOPOROSIS
     Dosage: 5 MG, UNK
     Route: 042
     Dates: start: 20111003

REACTIONS (3)
  - PRESYNCOPE [None]
  - SYNCOPE [None]
  - INFLUENZA LIKE ILLNESS [None]
